FAERS Safety Report 20068714 (Version 1)
Quarter: 2021Q4

REPORT INFORMATION
  Report Type: Spontaneous
  Country: CN (occurrence: CN)
  Receive Date: 20211115
  Receipt Date: 20211115
  Transmission Date: 20220303
  Serious: Yes (Life-Threatening, Hospitalization)
  Sender: FDA-Public Use
  Company Number: CN-BAYER-2021A244079

PATIENT
  Age: 74 Year
  Sex: Male
  Weight: 60 kg

DRUGS (3)
  1. GLUCOBAY [Interacting]
     Active Substance: ACARBOSE
     Indication: Diabetes mellitus
     Dosage: 50 MG, TID
     Route: 048
     Dates: start: 20210902, end: 20211031
  2. REPAGLINIDE [Interacting]
     Active Substance: REPAGLINIDE
     Indication: Diabetes mellitus
     Dosage: 30 MG, QD
     Route: 048
     Dates: start: 20210902, end: 20211031
  3. PIOGLITAZONE HYDROCHLORIDE [Interacting]
     Active Substance: PIOGLITAZONE HYDROCHLORIDE
     Indication: Diabetes mellitus
     Dosage: 4 MG, QD
     Route: 048
     Dates: start: 20210902, end: 20211031

REACTIONS (7)
  - Shock hypoglycaemic [Recovering/Resolving]
  - Coma [Recovering/Resolving]
  - Unresponsive to stimuli [Recovering/Resolving]
  - Cold sweat [Recovering/Resolving]
  - Pallor [Recovering/Resolving]
  - Peripheral coldness [Recovering/Resolving]
  - Pyrexia [Recovering/Resolving]

NARRATIVE: CASE EVENT DATE: 20211031
